FAERS Safety Report 9633709 (Version 1)
Quarter: 2013Q4

REPORT INFORMATION
  Report Type: Spontaneous
  Country: US (occurrence: US)
  Receive Date: 20131021
  Receipt Date: 20131021
  Transmission Date: 20140711
  Serious: Yes (Other)
  Sender: FDA-Public Use
  Company Number: US-PFIZER INC-2013298438

PATIENT
  Age: 43 Year
  Sex: Female
  Weight: 68.03 kg

DRUGS (4)
  1. PRISTIQ [Suspect]
     Indication: DEPRESSION
     Dosage: 50 MG, 1X/DAY
     Route: 048
     Dates: start: 201307, end: 201308
  2. PRISTIQ [Suspect]
     Dosage: 100 MG, 1X/DAY
     Route: 048
     Dates: start: 201308
  3. PRISTIQ [Suspect]
     Dosage: UNK
     Route: 048
     Dates: start: 2013
  4. SEROQUEL [Concomitant]
     Dosage: UNK

REACTIONS (1)
  - Alopecia [Unknown]
